FAERS Safety Report 12614849 (Version 8)
Quarter: 2017Q1

REPORT INFORMATION
  Report Type: Report from Study
  Country: NL (occurrence: NL)
  Receive Date: 20160802
  Receipt Date: 20170120
  Transmission Date: 20170428
  Serious: Yes (Death, Hospitalization)
  Sender: FDA-Public Use
  Company Number: NL-ROCHE-1802672

PATIENT
  Age: 73 Year
  Sex: Male
  Weight: 84.2 kg

DRUGS (20)
  1. MACROGOL [Concomitant]
     Active Substance: POLYETHYLENE GLYCOLS
     Indication: CONSTIPATION PROPHYLAXIS
     Route: 065
     Dates: start: 20160606
  2. AMLODIPINE [Concomitant]
     Active Substance: AMLODIPINE BESYLATE
     Indication: CORONARY ARTERY BYPASS
     Route: 065
     Dates: start: 2001
  3. ATEZOLIZUMAB [Suspect]
     Active Substance: ATEZOLIZUMAB
     Indication: NON-SMALL CELL LUNG CANCER STAGE IV
     Dosage: MOST RECENT DOSE OF ATEZOLIZUMAB WAS ADMINISTERED ON 14/JUL/2016 PRIOR TO ONSET OF ADVERSE EVENTS.
     Route: 042
     Dates: start: 20160714
  4. METOCLOPRAMIDE. [Concomitant]
     Active Substance: METOCLOPRAMIDE
     Indication: NAUSEA
     Route: 065
     Dates: start: 201604, end: 20160717
  5. DICLOFENAC [Concomitant]
     Active Substance: DICLOFENAC
     Indication: MUSCULOSKELETAL CHEST PAIN
     Route: 065
     Dates: start: 201604
  6. PANTOPRAZOL [Concomitant]
     Active Substance: PANTOPRAZOLE SODIUM
     Indication: PROPHYLAXIS
     Route: 065
     Dates: start: 20160308
  7. CARBOPLATIN. [Suspect]
     Active Substance: CARBOPLATIN
     Indication: NON-SMALL CELL LUNG CANCER STAGE IV
     Dosage: MOST RECENT DOSE OF CARBOPLATIN WAS ADMINISTERED ON 14/JUL/2016 PRIOR TO ONSET OF ADVERSE EVENTS.?AR
     Route: 042
     Dates: start: 20160714
  8. SOTALOL. [Concomitant]
     Active Substance: SOTALOL
     Indication: CORONARY ARTERY BYPASS
     Route: 065
     Dates: start: 2001
  9. OXYCODON [Concomitant]
     Active Substance: OXYCODONE
     Indication: MUSCULOSKELETAL CHEST PAIN
     Route: 065
     Dates: start: 201604
  10. METFORMIN [Concomitant]
     Active Substance: METFORMIN HYDROCHLORIDE
     Indication: DIABETES MELLITUS
     Route: 065
     Dates: start: 20160419
  11. NITROSPRAY [Concomitant]
     Indication: CORONARY ARTERY BYPASS
     Route: 065
     Dates: start: 2001
  12. VALSARTAN. [Concomitant]
     Active Substance: VALSARTAN
     Indication: CORONARY ARTERY BYPASS
     Route: 065
     Dates: start: 2001
  13. OXAZEPAM. [Concomitant]
     Active Substance: OXAZEPAM
     Indication: PROPHYLAXIS
     Route: 065
     Dates: start: 201601
  14. SPIRIVA [Concomitant]
     Active Substance: TIOTROPIUM BROMIDE MONOHYDRATE
     Indication: DYSPNOEA
     Route: 065
     Dates: start: 201604
  15. SIMVASTATINE [Concomitant]
     Active Substance: SIMVASTATIN
     Indication: CORONARY ARTERY BYPASS
     Route: 065
     Dates: start: 2001
  16. PARACETAMOL [Concomitant]
     Active Substance: ACETAMINOPHEN
     Indication: MUSCULOSKELETAL CHEST PAIN
     Route: 065
     Dates: start: 201604
  17. BEVACIZUMAB [Suspect]
     Active Substance: BEVACIZUMAB
     Indication: NON-SMALL CELL LUNG CANCER STAGE IV
     Dosage: MOST RECENT DOSE OF BEVACIZUMAB WAS ADMINISTERED ON 14/JUL/2016 PRIOR TO ONSET OF ADVERSE EVENTS.?15
     Route: 042
     Dates: start: 20160714
  18. PACLITAXEL. [Suspect]
     Active Substance: PACLITAXEL
     Indication: NON-SMALL CELL LUNG CANCER STAGE IV
     Dosage: MOST RECENT DOSE OF PACLITAXEL WAS ADMINISTERED ON 14/JUL/2016 PRIOR TO ONSET OF ADVERSE EVENTS.?200
     Route: 042
     Dates: start: 20160714
  19. ASCAL [Concomitant]
     Active Substance: CARBASPIRIN
     Indication: CORONARY ARTERY BYPASS
     Route: 065
     Dates: start: 2001
  20. ISOSORBID (ISOSORBIDE MONONITRATE) [Concomitant]
     Indication: CORONARY ARTERY BYPASS
     Route: 065
     Dates: start: 2001

REACTIONS (4)
  - Nausea [Not Recovered/Not Resolved]
  - Respiratory failure [Fatal]
  - Febrile neutropenia [Not Recovered/Not Resolved]
  - Hypophosphataemia [Not Recovered/Not Resolved]

NARRATIVE: CASE EVENT DATE: 20160717
